FAERS Safety Report 6020627-3 (Version None)
Quarter: 2008Q4

REPORT INFORMATION
  Report Type: 
  Country: None (occurrence: None)
  Receive Date: 20081224
  Receipt Date: 20081224
  Transmission Date: 20090506
  Serious: Yes (Life-Threatening, Hospitalization)
  Sender: FDA-Public Use
  Company Number: None

PATIENT
  Sex: Male
  Weight: 81.6475 kg

DRUGS (1)
  1. ISOSORBIDE MONONITRATE [Suspect]
     Indication: CHEST PAIN
     Dosage: 60 ML. 2X DAY

REACTIONS (7)
  - ANXIETY [None]
  - BURNING SENSATION [None]
  - CHEST PAIN [None]
  - HEADACHE [None]
  - INCORRECT DOSE ADMINISTERED [None]
  - INSOMNIA [None]
  - PRODUCT QUALITY ISSUE [None]
